FAERS Safety Report 7360371-3 (Version None)
Quarter: 2011Q1

REPORT INFORMATION
  Report Type: 
  Country: None (occurrence: None)
  Receive Date: 20110318
  Receipt Date: 20110218
  Transmission Date: 20110831
  Serious: Yes (Other)
  Sender: FDA-Public Use
  Company Number: US-BAYER-201019667NA

PATIENT
  Sex: Female
  Weight: 77.098 kg

DRUGS (18)
  1. MOTRIN [Concomitant]
     Dosage: UNK UNK, PRN
  2. PAXIL [Concomitant]
     Indication: DEPRESSION
  3. CLARITHROMYCIN [Concomitant]
     Dosage: UNK
     Dates: start: 20081205
  4. DIAZIDE [Concomitant]
     Dosage: UNK
     Dates: start: 20090101
  5. WELLBUTRIN [Concomitant]
     Indication: DEPRESSION
     Dosage: UNK
  6. JASMINE [Suspect]
     Dosage: UNK
     Dates: start: 20081101, end: 20090124
  7. NORVASC [Concomitant]
     Dosage: UNK
     Dates: start: 20090101
  8. FLUCONAZOLE [Concomitant]
     Dosage: UNK
     Dates: start: 20081210
  9. ALBUTEROL [Concomitant]
     Dosage: UNK
     Dates: start: 20080101
  10. PREVACID [Concomitant]
     Indication: GASTROOESOPHAGEAL REFLUX DISEASE
  11. ANTIBIOTICS [Concomitant]
     Dosage: UNK UNK, PRN
  12. YAZ [Suspect]
     Indication: CONTRACEPTION
     Dosage: UNK
     Route: 048
     Dates: start: 20081101, end: 20090101
  13. ADVIL LIQUI-GELS [Concomitant]
     Dosage: UNK UNK, PRN
  14. SYNTHROID [Concomitant]
     Indication: BASEDOW'S DISEASE
     Dosage: UNK
     Dates: start: 19850101
  15. NASONEX [Concomitant]
     Indication: MULTIPLE ALLERGIES
  16. IPRATROPIUM BROMIDE [Concomitant]
     Indication: MULTIPLE ALLERGIES
  17. METHYLPREDNISOLONE [Concomitant]
     Dosage: UNK
     Dates: start: 20081224
  18. DIURETICS [Concomitant]
     Dosage: UNK

REACTIONS (3)
  - ATRIAL FIBRILLATION [None]
  - PALPITATIONS [None]
  - HYPERTENSION [None]
